FAERS Safety Report 14554582 (Version 1)
Quarter: 2018Q1

REPORT INFORMATION
  Report Type: Spontaneous
  Country: US (occurrence: US)
  Receive Date: 20180218
  Receipt Date: 20180218
  Transmission Date: 20180509
  Serious: Yes (Other)
  Sender: FDA-Public Use
  Company Number: None

PATIENT
  Age: 73 Year
  Sex: Female
  Weight: 76.5 kg

DRUGS (10)
  1. PANTOPRAZOLE [Concomitant]
     Active Substance: PANTOPRAZOLE
  2. CLARITHROMYCIN, 500 MG TAB CIT [Suspect]
     Active Substance: CLARITHROMYCIN
     Indication: GASTROINTESTINAL INFECTION
     Dosage: ?          QUANTITY:28 TABLET(S);?
     Route: 048
     Dates: start: 20180202, end: 20180216
  3. HYDROCHLORTHIAZIDE [Concomitant]
     Active Substance: HYDROCHLOROTHIAZIDE
  4. PROTONIX [Concomitant]
     Active Substance: PANTOPRAZOLE SODIUM
  5. ACETAMINOPHEN. [Concomitant]
     Active Substance: ACETAMINOPHEN
  6. AMOXICILLIN 500MG CAP TEVA USA [Suspect]
     Active Substance: AMOXICILLIN
     Indication: GASTROINTESTINAL INFECTION
     Dosage: ?          QUANTITY:56 CAPSULE(S);OTHER FREQUENCY:2 CAPS TWICE DAILY;?
     Route: 048
     Dates: start: 20180202, end: 20180216
  7. SIMVASTATIN. [Concomitant]
     Active Substance: SIMVASTATIN
  8. METOPROLOL. [Concomitant]
     Active Substance: METOPROLOL
  9. LOSARTAN. [Concomitant]
     Active Substance: LOSARTAN
  10. CULTURELLE PROBIOTICS [Concomitant]

REACTIONS (7)
  - Cough [None]
  - Burning sensation [None]
  - Sinus congestion [None]
  - Lip pain [None]
  - Sneezing [None]
  - Oropharyngeal pain [None]
  - Glossodynia [None]

NARRATIVE: CASE EVENT DATE: 20180208
